FAERS Safety Report 11639512 (Version 1)
Quarter: 2015Q4

REPORT INFORMATION
  Report Type: Report from Study
  Country: US (occurrence: US)
  Receive Date: 20151019
  Receipt Date: 20151019
  Transmission Date: 20160304
  Serious: Yes (Other)
  Sender: FDA-Public Use
  Company Number: PHEH2015US003252

PATIENT
  Age: 54 Year
  Sex: Female
  Weight: 48.1 kg

DRUGS (1)
  1. ZOMETA [Suspect]
     Active Substance: ZOLEDRONIC ACID
     Indication: BREAST CANCER
     Dosage: 4 MG/100 ML, ONCE EVERY 6 MONTHS
     Route: 042
     Dates: start: 20140930, end: 20140930

REACTIONS (6)
  - Swelling [Unknown]
  - Rash [Recovered/Resolved]
  - Bone pain [Unknown]
  - Ocular hyperaemia [Unknown]
  - Erythema [Unknown]
  - Urticaria [Unknown]

NARRATIVE: CASE EVENT DATE: 20141008
